FAERS Safety Report 6355865-3 (Version None)
Quarter: 2009Q3

REPORT INFORMATION
  Report Type: 
  Country: None (occurrence: None)
  Receive Date: 20090915
  Receipt Date: 20090904
  Transmission Date: 20100115
  Serious: Yes (Other)
  Sender: FDA-Public Use
  Company Number: US-ELI_LILLY_AND_COMPANY-US200906001486

PATIENT
  Sex: Female
  Weight: 76.644 kg

DRUGS (2)
  1. FORTEO [Suspect]
     Indication: OSTEOPOROSIS
     Dosage: 250 MG, DAILY (1/D)
     Route: 058
     Dates: start: 20090520, end: 20090604
  2. FORTEO [Suspect]
     Dosage: 250 MG, DAILY (1/D)
     Route: 058
     Dates: start: 20090101

REACTIONS (5)
  - BREAST CANCER [None]
  - HEADACHE [None]
  - JOINT SWELLING [None]
  - OVERDOSE [None]
  - VITAMIN D DECREASED [None]
